FAERS Safety Report 5517828-7 (Version None)
Quarter: 2007Q4

REPORT INFORMATION
  Report Type: 
  Country: None (occurrence: None)
  Receive Date: 20071113
  Receipt Date: 20071101
  Transmission Date: 20080405
  Serious: Yes (Other)
  Sender: FDA-Public Use
  Company Number: 2007-02861

PATIENT
  Age: 80 Year
  Sex: Female
  Weight: 52.2 kg

DRUGS (4)
  1. VELCADE [Suspect]
     Indication: MULTIPLE MYELOMA
     Dosage: 1.30 MG/M2 ; 1.00 MG
  2. LISINOPRIL [Concomitant]
  3. LIPITOR [Concomitant]
  4. ASPIRIN [Concomitant]

REACTIONS (10)
  - ANGIOPATHY [None]
  - BLINDNESS TRANSIENT [None]
  - CATARACT [None]
  - HYPOAESTHESIA [None]
  - NEUROPATHY PERIPHERAL [None]
  - PRESYNCOPE [None]
  - REVERSIBLE POSTERIOR LEUKOENCEPHALOPATHY SYNDROME [None]
  - SENSATION OF HEAVINESS [None]
  - THROMBOCYTOPENIA [None]
  - VISUAL ACUITY REDUCED [None]
